FAERS Safety Report 9476203 (Version 2)
Quarter: 2013Q3

REPORT INFORMATION
  Report Type: Spontaneous
  Country: US (occurrence: US)
  Receive Date: 20130826
  Receipt Date: 20130826
  Transmission Date: 20140515
  Serious: Yes (Hospitalization, Other)
  Sender: FDA-Public Use
  Company Number: US-SHIRE-ALL1-2013-04239

PATIENT
  Sex: Female
  Weight: 41.27 kg

DRUGS (4)
  1. INTUNIV [Suspect]
     Indication: ATTENTION DEFICIT/HYPERACTIVITY DISORDER
     Dosage: 3 MG, 1X/DAY:QD
     Route: 048
     Dates: start: 20130402, end: 201306
  2. CONCERTA [Concomitant]
     Indication: ATTENTION DEFICIT/HYPERACTIVITY DISORDER
     Dosage: 54 MG, 1X/DAY:QD
     Route: 048
     Dates: start: 20130402
  3. FLUOXETINE HCL [Concomitant]
     Indication: DEPRESSION
     Dosage: 1.5 DF, 1X/DAY:QD (ONE AND A HALF 10 MG CAPSULES)
     Route: 048
     Dates: start: 20130402
  4. FLUOXETINE HCL [Concomitant]
     Dosage: 20 MG, 1X/DAY:QD
     Route: 048
     Dates: start: 20130504

REACTIONS (6)
  - Suicidal ideation [Unknown]
  - Toxicity to various agents [Unknown]
  - Presyncope [Recovered/Resolved]
  - Blood pressure systolic decreased [Recovered/Resolved]
  - Bradycardia [Recovered/Resolved]
  - Somnolence [Recovered/Resolved]
